FAERS Safety Report 10165652 (Version 1)
Quarter: 2014Q2

REPORT INFORMATION
  Report Type: Spontaneous
  Country: US (occurrence: US)
  Receive Date: 20140510
  Receipt Date: 20140510
  Transmission Date: 20141212
  Serious: No
  Sender: FDA-Public Use
  Company Number: US-BRISTOL-MYERS SQUIBB COMPANY-19880731

PATIENT
  Age: 77 Year
  Sex: Female

DRUGS (2)
  1. BYDUREON [Suspect]
     Dosage: LAST INJECTION ON 18NOV13,NO OF DOSES:4
     Route: 058
  2. LEVEMIR [Concomitant]

REACTIONS (1)
  - Blood glucose increased [Unknown]
